FAERS Safety Report 4314953-3 (Version None)
Quarter: 2004Q1

REPORT INFORMATION
  Report Type: 
  Country: None (occurrence: None)
  Receive Date: 20040309
  Receipt Date: 20040224
  Transmission Date: 20041129
  Serious: Yes (Death)
  Sender: FDA-Public Use
  Company Number: DE_031212545

PATIENT
  Age: 77 Year
  Sex: Female
  Weight: 24 kg

DRUGS (10)
  1. FORSTEO (TERIPARATIDE) [Suspect]
     Dates: start: 20031128
  2. METEX (METHOTREXATE SODIUM) [Concomitant]
  3. FOLIC ACID [Concomitant]
  4. IBUPROFEN [Concomitant]
  5. VALORON (TILIDINE HYDROCHLORIDE) [Concomitant]
  6. VITAMIN D [Concomitant]
  7. CALCIUM [Concomitant]
  8. ISOPTIN MITE (VERAPAMIL HYDROCHLORIDE) [Concomitant]
  9. MERCAPTOPURINE [Concomitant]
  10. PHYTODOLOR [Concomitant]

REACTIONS (1)
  - CARDIAC FAILURE [None]
